FAERS Safety Report 12388299 (Version 1)
Quarter: 2016Q2

REPORT INFORMATION
  Report Type: Spontaneous
  Country: US (occurrence: None)
  Receive Date: 20160519
  Receipt Date: 20160519
  Transmission Date: 20160815
  Serious: No
  Sender: FDA-Public Use
  Company Number: None

PATIENT
  Sex: Female

DRUGS (3)
  1. JANUMET [Suspect]
     Active Substance: METFORMIN HYDROCHLORIDE\SITAGLIPTIN PHOSPHATE
  2. TANZEUM [Suspect]
     Active Substance: ALBIGLUTIDE
  3. METFORMIN [Concomitant]
     Active Substance: METFORMIN HYDROCHLORIDE

REACTIONS (7)
  - Onychomycosis [None]
  - Toothache [None]
  - Urinary tract infection [None]
  - Blood test abnormal [None]
  - Hypersensitivity [None]
  - Gestational diabetes [None]
  - Liver injury [None]
